FAERS Safety Report 16758963 (Version 2)
Quarter: 2019Q3

REPORT INFORMATION
  Report Type: Spontaneous
  Country: DE (occurrence: DE)
  Receive Date: 20190830
  Receipt Date: 20190911
  Transmission Date: 20191005
  Serious: Yes (Other)
  Sender: FDA-Public Use
  Company Number: PHHY2019DE199293

PATIENT
  Age: 65 Year
  Sex: Male
  Weight: 71 kg

DRUGS (3)
  1. METOPROLOLSUCCINAT 1A PHARMA [Suspect]
     Active Substance: METOPROLOL SUCCINATE
     Indication: ATRIAL FIBRILLATION
     Dosage: 1 DF, UNK (1-0-1/2)
     Route: 065
     Dates: start: 2011, end: 201908
  2. METOPROLOLSUCCINAT 1A PHARMA [Suspect]
     Active Substance: METOPROLOL SUCCINATE
     Dosage: 0.25 DF, ONCE/SINGLE (1/4 DOSAGE FORM )
     Route: 065
  3. METOPROLOLSUCCINAT 1A PHARMA [Suspect]
     Active Substance: METOPROLOL SUCCINATE
     Dosage: 0.5 DF, BID (1-0-1)
     Route: 065
     Dates: start: 201908

REACTIONS (8)
  - Blood pressure decreased [Recovering/Resolving]
  - Asthenia [Unknown]
  - Dizziness [Unknown]
  - Incorrect dose administered [Unknown]
  - Wrong technique in product usage process [Unknown]
  - Heart rate irregular [Unknown]
  - Weight decreased [Unknown]
  - Hypoaesthesia [Unknown]

NARRATIVE: CASE EVENT DATE: 201901
